FAERS Safety Report 21916279 (Version 1)
Quarter: 2023Q1

REPORT INFORMATION
  Report Type: Report from Study
  Country: CA (occurrence: CA)
  Receive Date: 20230126
  Receipt Date: 20230126
  Transmission Date: 20230417
  Serious: Yes (Hospitalization, Other)
  Sender: FDA-Public Use
  Company Number: CA-HLS-202300097

PATIENT
  Age: 61 Year
  Sex: Male

DRUGS (8)
  1. CLOZARIL [Suspect]
     Active Substance: CLOZAPINE
     Indication: Product used for unknown indication
     Dosage: 100 MG TID AND QHS
     Route: 048
     Dates: start: 19950921, end: 202212
  2. BENZTROPINE [Concomitant]
     Active Substance: BENZTROPINE
     Indication: Product used for unknown indication
     Dosage: 2 MG, ORAL, BID
     Route: 048
  3. PIMOZIDE [Concomitant]
     Active Substance: PIMOZIDE
     Indication: Product used for unknown indication
     Dosage: 4 MG TWICE DAILY
     Route: 048
  4. PRIMIDONE [Concomitant]
     Active Substance: PRIMIDONE
     Indication: Product used for unknown indication
     Dosage: 250 MG ORAL BID
     Route: 048
  5. PHENYTOIN [Concomitant]
     Active Substance: PHENYTOIN
     Indication: Product used for unknown indication
     Dosage: 200 MG ORAL BID
     Route: 048
  6. LEVOTHYROXINE [Concomitant]
     Active Substance: LEVOTHYROXINE
     Indication: Product used for unknown indication
     Dosage: 0.1 MG DAILY
     Route: 048
  7. CLONAZEPAM [Concomitant]
     Active Substance: CLONAZEPAM
     Indication: Product used for unknown indication
     Dosage: 0.5 MG TWICE DAILY
     Route: 048
  8. SERTRALINE [Concomitant]
     Active Substance: SERTRALINE HYDROCHLORIDE
     Indication: Product used for unknown indication
     Dosage: 200 MG IN THE MORNING
     Route: 048

REACTIONS (16)
  - Arrhythmia [Unknown]
  - Pulmonary embolism [Unknown]
  - Congenital spinal stenosis [Unknown]
  - Deep vein thrombosis [Unknown]
  - Depression [Unknown]
  - Alcohol abuse [Unknown]
  - Fall [Unknown]
  - Head injury [Unknown]
  - Alcohol withdrawal syndrome [Unknown]
  - Electrocardiogram T wave abnormal [Unknown]
  - Ischaemia [Unknown]
  - Central cord syndrome [Unknown]
  - Electrocardiogram QT prolonged [Recovering/Resolving]
  - Schizoaffective disorder [Unknown]
  - Seborrhoeic dermatitis [Unknown]
  - Ventricular tachycardia [Unknown]

NARRATIVE: CASE EVENT DATE: 20221201
